APPROVED DRUG PRODUCT: METOPROLOL TARTRATE
Active Ingredient: METOPROLOL TARTRATE
Strength: 1MG/ML
Dosage Form/Route: INJECTABLE;INJECTION
Application: A074133 | Product #001
Applicant: HOSPIRA INC
Approved: Dec 21, 1993 | RLD: No | RS: No | Type: DISCN